FAERS Safety Report 7861578-9 (Version None)
Quarter: 2011Q4

REPORT INFORMATION
  Report Type: 
  Country: None (occurrence: None)
  Receive Date: 20111026
  Receipt Date: 20111018
  Transmission Date: 20120403
  Serious: Yes (Hospitalization, Other)
  Sender: FDA-Public Use
  Company Number: 2011SP004362

PATIENT
  Age: 36 Year
  Sex: Female
  Weight: 51.7101 kg

DRUGS (3)
  1. WOMEN'S ONE A DAY VITAMIN [Concomitant]
  2. NUVARING [Suspect]
     Indication: CONTRACEPTION
     Dates: start: 20080201
  3. NUVARING [Suspect]
     Indication: CONTRACEPTION
     Dates: start: 20070101, end: 20090130

REACTIONS (33)
  - HYPERCOAGULATION [None]
  - ANXIETY [None]
  - MULTIPLE INJURIES [None]
  - HEART RATE IRREGULAR [None]
  - CHEST PAIN [None]
  - HYPOAESTHESIA [None]
  - OPEN WOUND [None]
  - SKIN PAPILLOMA [None]
  - DEEP VEIN THROMBOSIS [None]
  - NAUSEA [None]
  - NECK PAIN [None]
  - TENSION HEADACHE [None]
  - RESPIRATORY DISORDER [None]
  - GASTRIC DISORDER [None]
  - SINUSITIS [None]
  - BUNDLE BRANCH BLOCK RIGHT [None]
  - HEADACHE [None]
  - CONSTIPATION [None]
  - LIGAMENT SPRAIN [None]
  - DIZZINESS [None]
  - URINARY TRACT INFECTION [None]
  - EUSTACHIAN TUBE DYSFUNCTION [None]
  - PHARYNGITIS STREPTOCOCCAL [None]
  - MENTAL DISORDER [None]
  - DYSPNOEA [None]
  - MIGRAINE [None]
  - BACK PAIN [None]
  - RHINITIS ALLERGIC [None]
  - PAIN IN EXTREMITY [None]
  - MUSCLE STRAIN [None]
  - EMOTIONAL DISORDER [None]
  - MUSCULOSKELETAL PAIN [None]
  - ARTHRALGIA [None]
